FAERS Safety Report 21105408 (Version 1)
Quarter: 2022Q3

REPORT INFORMATION
  Report Type: Spontaneous
  Country: CN (occurrence: CN)
  Receive Date: 20220720
  Receipt Date: 20220720
  Transmission Date: 20221027
  Serious: Yes (Other)
  Sender: FDA-Public Use
  Company Number: CN-PFIZER INC-PV202200025139

PATIENT
  Age: 34 Year
  Sex: Female
  Weight: 57 kg

DRUGS (2)
  1. CELEBREX [Suspect]
     Active Substance: CELECOXIB
     Indication: Muscle strain
     Dosage: 0.2 G, 1X/DAY
     Route: 048
     Dates: start: 20220712, end: 20220712
  2. PAN LONG QI [Concomitant]
     Indication: Muscle strain
     Dosage: 3 TABLETS, 3X/DAY
     Route: 048
     Dates: start: 20220712, end: 20220712

REACTIONS (4)
  - Hypersensitivity [Recovering/Resolving]
  - Pruritus [Recovering/Resolving]
  - Face oedema [Recovering/Resolving]
  - Erythema [Recovering/Resolving]

NARRATIVE: CASE EVENT DATE: 20220713
